FAERS Safety Report 9790801 (Version 1)
Quarter: 2013Q4

REPORT INFORMATION
  Report Type: Spontaneous
  Country: CA (occurrence: CA)
  Receive Date: 20131231
  Receipt Date: 20131231
  Transmission Date: 20140711
  Serious: Yes (Other)
  Sender: FDA-Public Use
  Company Number: PHHY2013CA152670

PATIENT
  Age: 37 Year
  Sex: Female

DRUGS (6)
  1. METFORMIN [Suspect]
  2. METHOTREXATE [Suspect]
     Indication: RHEUMATOID ARTHRITIS
     Dosage: 20 MG, QW
     Route: 030
  3. ACETYLSALICYLIC ACID [Suspect]
  4. PENICILLAMINE [Suspect]
  5. LEVOTHYROXINE [Suspect]
     Indication: HYPOTHYROIDISM
  6. SALBUTAMOL [Suspect]
     Indication: ASTHMA
     Route: 055

REACTIONS (3)
  - Abortion spontaneous [Unknown]
  - Maternal exposure before pregnancy [Unknown]
  - Maternal exposure during pregnancy [Unknown]
